FAERS Safety Report 25190154 (Version 1)
Quarter: 2025Q2

REPORT INFORMATION
  Report Type: Report from Study
  Country: BR (occurrence: BR)
  Receive Date: 20250411
  Receipt Date: 20250411
  Transmission Date: 20250716
  Serious: Yes (Hospitalization)
  Sender: JOHNSON AND JOHNSON
  Company Number: BR-JNJFOC-20250403897

PATIENT
  Age: 58 Year
  Sex: Female

DRUGS (3)
  1. RYBREVANT [Suspect]
     Active Substance: AMIVANTAMAB-VMJW
     Indication: Product used for unknown indication
     Route: 065
  2. RYBREVANT [Suspect]
     Active Substance: AMIVANTAMAB-VMJW
     Route: 065
  3. RYBREVANT [Suspect]
     Active Substance: AMIVANTAMAB-VMJW
     Route: 065

REACTIONS (4)
  - Infusion related reaction [Recovered/Resolved]
  - Pyrexia [Recovered/Resolved]
  - Platelet count decreased [Recovered/Resolved]
  - Heart rate increased [Recovered/Resolved]

NARRATIVE: CASE EVENT DATE: 20250328
